FAERS Safety Report 18308362 (Version 3)
Quarter: 2020Q3

REPORT INFORMATION
  Report Type: Spontaneous
  Country: US (occurrence: US)
  Receive Date: 20200924
  Receipt Date: 20200929
  Transmission Date: 20201103
  Serious: No
  Sender: FDA-Public Use
  Company Number: US-BIOGEN-2020BI00924972

PATIENT
  Sex: Female

DRUGS (1)
  1. TECFIDERA [Suspect]
     Active Substance: DIMETHYL FUMARATE
     Indication: MULTIPLE SCLEROSIS
     Route: 065
     Dates: start: 20130509

REACTIONS (6)
  - Crying [Not Recovered/Not Resolved]
  - Stress [Recovered/Resolved]
  - Blood pressure abnormal [Unknown]
  - Weight increased [Recovered/Resolved]
  - Emotional distress [Unknown]
  - Weight decreased [Unknown]
